FAERS Safety Report 5879439-3 (Version None)
Quarter: 2008Q3

REPORT INFORMATION
  Report Type: 
  Country: None (occurrence: None)
  Receive Date: 20080912
  Receipt Date: 20080910
  Transmission Date: 20090109
  Serious: Yes (Hospitalization)
  Sender: FDA-Public Use
  Company Number: B0536469A

PATIENT
  Age: 61 Year
  Sex: Male

DRUGS (8)
  1. MODACIN [Suspect]
     Indication: CHOLANGITIS
     Dosage: 1G TWICE PER DAY
     Route: 042
     Dates: start: 20080813, end: 20080820
  2. FUTHAN [Suspect]
     Indication: DRUG USE FOR UNKNOWN INDICATION
     Route: 042
     Dates: start: 20080813, end: 20080813
  3. FUTHAN [Suspect]
     Route: 042
     Dates: start: 20080818, end: 20080818
  4. FUTHAN [Suspect]
     Route: 042
     Dates: start: 20080820, end: 20080820
  5. TAGAMET [Suspect]
     Indication: DRUG USE FOR UNKNOWN INDICATION
     Route: 065
     Dates: start: 20080813, end: 20080813
  6. TAGAMET [Suspect]
     Route: 065
     Dates: start: 20080818, end: 20080818
  7. TAGAMET [Suspect]
     Route: 065
     Dates: start: 20080820, end: 20080820
  8. THROMBIN LOCAL SOLUTION [Suspect]
     Indication: DRUG USE FOR UNKNOWN INDICATION
     Route: 065
     Dates: start: 20080820, end: 20080820

REACTIONS (1)
  - HEPATIC FUNCTION ABNORMAL [None]
